FAERS Safety Report 7552626-4 (Version None)
Quarter: 2011Q2

REPORT INFORMATION
  Report Type: 
  Country: None (occurrence: None)
  Receive Date: 20110616
  Receipt Date: 20110606
  Transmission Date: 20111010
  Serious: Yes (Other)
  Sender: FDA-Public Use
  Company Number: ES-UCBSA-034763

PATIENT
  Age: 43 Year
  Sex: Female

DRUGS (4)
  1. ZONEGRAN [Concomitant]
     Indication: EPILEPSY
  2. KEPPRA [Concomitant]
     Indication: EPILEPSY
  3. VIMPAT [Suspect]
     Route: 048
     Dates: start: 20110501
  4. VIMPAT [Suspect]
     Indication: EPILEPSY
     Route: 048
     Dates: start: 20110101, end: 20110501

REACTIONS (1)
  - ATONIC SEIZURES [None]
